FAERS Safety Report 20920054 (Version 1)
Quarter: 2022Q2

REPORT INFORMATION
  Report Type: Spontaneous
  Country: US (occurrence: None)
  Receive Date: 20220605
  Receipt Date: 20220605
  Transmission Date: 20220721
  Serious: Yes (Disabling)
  Sender: FDA-Public Use
  Company Number: None

PATIENT
  Age: 75 Year
  Sex: Female
  Weight: 56.25 kg

DRUGS (5)
  1. SINGULAIR [Suspect]
     Active Substance: MONTELUKAST SODIUM
     Indication: Rhinitis allergic
     Dosage: FREQUENCY : AT BEDTIME;?
     Route: 048
  2. SINGULAIR [Suspect]
     Active Substance: MONTELUKAST SODIUM
     Indication: Food allergy
  3. VITAMIN D [Concomitant]
     Active Substance: VITAMIN D NOS
  4. CLARITIN [Concomitant]
     Active Substance: LORATADINE
  5. lipid lowering [Concomitant]

REACTIONS (4)
  - Parasomnia [None]
  - Fear [None]
  - Anxiety [None]
  - Fatigue [None]

NARRATIVE: CASE EVENT DATE: 20211005
